FAERS Safety Report 9128145 (Version 1)
Quarter: 2013Q1

REPORT INFORMATION
  Report Type: Spontaneous
  Country: AU (occurrence: AU)
  Receive Date: 20130125
  Receipt Date: 20130125
  Transmission Date: 20140127
  Serious: Yes (Other)
  Sender: FDA-Public Use
  Company Number: AU-PERRIGO-13AU000347

PATIENT
  Age: 71 Year
  Sex: Female

DRUGS (2)
  1. IBUPROFEN 200 MG 604 [Suspect]
     Indication: BACK PAIN
     Dosage: 1600 MG, QD
     Route: 048
  2. IBUPROFEN 200 MG 604 [Suspect]
     Indication: HEADACHE

REACTIONS (6)
  - Renal tubular acidosis [Recovering/Resolving]
  - Renal injury [Recovering/Resolving]
  - Hypokalaemia [Recovering/Resolving]
  - Nausea [Recovering/Resolving]
  - Vomiting [Recovering/Resolving]
  - Malaise [Recovering/Resolving]
